FAERS Safety Report 13722256 (Version 2)
Quarter: 2017Q3

REPORT INFORMATION
  Report Type: Spontaneous
  Country: IT (occurrence: IT)
  Receive Date: 20170706
  Receipt Date: 20170811
  Transmission Date: 20171127
  Serious: Yes (Other)
  Sender: FDA-Public Use
  Company Number: IT-JNJFOC-20170702903

PATIENT
  Age: 80 Year
  Sex: Male
  Weight: 77 kg

DRUGS (5)
  1. PANTORC [Concomitant]
     Active Substance: PANTOPRAZOLE SODIUM
     Route: 065
  2. XARELTO [Suspect]
     Active Substance: RIVAROXABAN
     Indication: ATRIAL FIBRILLATION
     Route: 048
     Dates: start: 20170301, end: 20170524
  3. CARDIOASPIRIN [Concomitant]
     Active Substance: ASPIRIN
     Route: 065
  4. DELTACORTENE [Concomitant]
     Active Substance: PREDNISONE
     Route: 065
  5. AMIODAR [Concomitant]
     Active Substance: AMIODARONE
     Indication: ATRIAL FIBRILLATION
     Route: 065

REACTIONS (2)
  - Haematuria [Recovering/Resolving]
  - Blood creatinine abnormal [Recovering/Resolving]

NARRATIVE: CASE EVENT DATE: 20170524
